FAERS Safety Report 6483039-4 (Version None)
Quarter: 2009Q4

REPORT INFORMATION
  Report Type: 
  Country: None (occurrence: None)
  Receive Date: 20091209
  Receipt Date: 20091106
  Transmission Date: 20100525
  Serious: No
  Sender: FDA-Public Use
  Company Number: US-KINGPHARMUSA00001-K200901398

PATIENT
  Sex: Female

DRUGS (1)
  1. EMBEDA [Suspect]
     Dosage: 30 MG, UNK

REACTIONS (1)
  - ABDOMINAL DISCOMFORT [None]
